FAERS Safety Report 10247113 (Version 9)
Quarter: 2018Q3

REPORT INFORMATION
  Report Type: Other
  Country: IT (occurrence: IT)
  Receive Date: 20140619
  Receipt Date: 20180927
  Transmission Date: 20181010
  Serious: Yes (Life-Threatening, Hospitalization, Other)
  Sender: FDA-Public Use
  Company Number: IT-ALEXION PHARMACEUTICALS INC.-A201402377

PATIENT
  Age: 17 Year
  Sex: Female
  Weight: 60 kg

DRUGS (6)
  1. SOLIRIS [Suspect]
     Active Substance: ECULIZUMAB
     Dosage: 900 MG, QW FOR 1 WEEK
     Route: 042
  2. SOLIRIS [Suspect]
     Active Substance: ECULIZUMAB
     Dosage: 900 MG, QWX1 WEEK
     Route: 042
     Dates: start: 20140219, end: 20140410
  3. SOLIRIS [Suspect]
     Active Substance: ECULIZUMAB
     Dosage: 900 MG, Q2W
     Route: 042
     Dates: start: 20141202
  4. MENVEO [Suspect]
     Active Substance: NEISSERIA MENINGITIDIS GROUP A CAPSULAR OLIGOSACCHARIDE DIPHTHERIA CRM197 PROTEIN CONJUGATE ANTIGEN\NEISSERIA MENINGITIDIS GROUP C CAPSULAR OLIGOSACCHARIDE DIPHTHERIA CRM197 PROTEIN CONJUGATE ANTIGEN\NEISSERIA MENINGITIDIS GROUP W-135 CAPSULAR OLIGOSACCHARIDE DIPHTHERIA CRM197 PROTEIN CONJUGATE ANTI
     Indication: PROPHYLAXIS
     Dosage: UNK
     Route: 065
     Dates: start: 20140127, end: 20140127
  5. SOLIRIS [Suspect]
     Active Substance: ECULIZUMAB
     Indication: PAROXYSMAL NOCTURNAL HAEMOGLOBINURIA
     Dosage: 600 MG, QW X 4 WEEKS
     Route: 042
     Dates: start: 20140212
  6. MENJUGATE [Suspect]
     Active Substance: MENINGOCOCCAL POLYSACCHARIDE VACCINE C
     Indication: PROPHYLAXIS
     Route: 065

REACTIONS (2)
  - Vaccination failure [Unknown]
  - Meningococcal sepsis [Recovered/Resolved]

NARRATIVE: CASE EVENT DATE: 201404
